FAERS Safety Report 10031631 (Version 1)
Quarter: 2014Q1

REPORT INFORMATION
  Report Type: Spontaneous
  Country: US (occurrence: US)
  Receive Date: 20140324
  Receipt Date: 20140324
  Transmission Date: 20141002
  Serious: No
  Sender: FDA-Public Use
  Company Number: US-PFIZER INC-2014080513

PATIENT
  Age: 80 Year
  Sex: Male
  Weight: 90.7 kg

DRUGS (4)
  1. VIAGRA [Suspect]
     Indication: ERECTILE DYSFUNCTION
     Dosage: 50 MG, UNK
     Dates: start: 201312, end: 201312
  2. GLIPIZIDE [Concomitant]
     Indication: DIABETES MELLITUS
     Dosage: 100 MG, UNK
  3. ASPIRIN [Concomitant]
     Dosage: UNK, DAILY
  4. NEXIUM [Concomitant]
     Dosage: 20 MG, 2X/DAY

REACTIONS (2)
  - Dizziness [Recovered/Resolved]
  - Flushing [Recovered/Resolved]
